FAERS Safety Report 12639221 (Version 1)
Quarter: 2016Q3

REPORT INFORMATION
  Report Type: Spontaneous
  Country: US (occurrence: US)
  Receive Date: 20160810
  Receipt Date: 20160810
  Transmission Date: 20161109
  Serious: No
  Sender: FDA-Public Use
  Company Number: US-AMGEN-USASP2016101102

PATIENT
  Age: 53 Year
  Sex: Female

DRUGS (19)
  1. CELEXA [Concomitant]
     Active Substance: CITALOPRAM HYDROBROMIDE
     Dosage: 40 MG, UNK
  2. RANITIDINE HCL [Concomitant]
     Active Substance: RANITIDINE HYDROCHLORIDE
     Dosage: UNK
  3. SUMATRIPTAN SUCCINATE. [Concomitant]
     Active Substance: SUMATRIPTAN SUCCINATE
     Dosage: UNK
  4. LYRICA [Concomitant]
     Active Substance: PREGABALIN
     Dosage: 150 MG, UNK
  5. NAPROXEN DELAYED RELEASE [Concomitant]
     Active Substance: NAPROXEN
     Dosage: 500 MG, UNK
  6. PAROXETINE. [Concomitant]
     Active Substance: PAROXETINE
     Dosage: 40 MG, UNK
  7. TIZANIDINE. [Concomitant]
     Active Substance: TIZANIDINE
     Dosage: 4 MG, UNK
  8. ESTRADIOL. [Concomitant]
     Active Substance: ESTRADIOL
     Dosage: 0.05 MG, UNK
  9. FENTANYL. [Concomitant]
     Active Substance: FENTANYL
     Dosage: 25 MCG/HR
  10. OXYCODONE WITH APAP [Concomitant]
     Active Substance: ACETAMINOPHEN\OXYCODONE HYDROCHLORIDE
     Dosage: 7.5-325
  11. BUSPIRONE [Concomitant]
     Active Substance: BUSPIRONE HYDROCHLORIDE
     Dosage: 5 MG, UNK
  12. MORPHINE SULFATE. [Concomitant]
     Active Substance: MORPHINE SULFATE
     Dosage: 15 MG, UNK
  13. AMOXICILLIN. [Concomitant]
     Active Substance: AMOXICILLIN
     Dosage: 500 MG, UNK
  14. BACLOFEN. [Concomitant]
     Active Substance: BACLOFEN
     Dosage: 10 MG, UNK
  15. PROCHLORPERAZINE. [Concomitant]
     Active Substance: PROCHLORPERAZINE
     Dosage: 10 MG, UNK
  16. TOPIRAMATE. [Concomitant]
     Active Substance: TOPIRAMATE
     Dosage: 100 MG, UNK
  17. ENBREL [Suspect]
     Active Substance: ETANERCEPT
     Indication: ANKYLOSING SPONDYLITIS
     Dosage: 50 MG, QWK
     Route: 058
     Dates: start: 20160610
  18. LANSOPRAZOLE. [Concomitant]
     Active Substance: LANSOPRAZOLE
     Dosage: 30 MG, DR
  19. REMERON [Concomitant]
     Active Substance: MIRTAZAPINE
     Dosage: 15 MG, UNK

REACTIONS (1)
  - Insomnia [Not Recovered/Not Resolved]

NARRATIVE: CASE EVENT DATE: 2016
